FAERS Safety Report 9437415 (Version 2)
Quarter: 2018Q3

REPORT INFORMATION
  Report Type: Spontaneous
  Country: US (occurrence: US)
  Receive Date: 20130802
  Receipt Date: 20180723
  Transmission Date: 20181010
  Serious: No
  Sender: FDA-Public Use
  Company Number: US-009507513-1307USA010112

PATIENT
  Age: 31 Year
  Sex: Female

DRUGS (4)
  1. LOPINAVIR (+) RITONAVIR [Suspect]
     Active Substance: LOPINAVIR\RITONAVIR
     Dosage: 6 DF, QD
     Route: 048
     Dates: start: 201210
  2. ISENTRESS [Suspect]
     Active Substance: RALTEGRAVIR POTASSIUM
     Dosage: 800 DF, QD
     Route: 048
  3. LAMIVUDINE. [Suspect]
     Active Substance: LAMIVUDINE
     Dosage: 2 DF, QD
     Route: 048
     Dates: start: 201210
  4. ZIDOVUDINE. [Suspect]
     Active Substance: ZIDOVUDINE
     Dosage: 2 DF, QD
     Route: 048
     Dates: start: 201210

REACTIONS (1)
  - Maternal exposure during pregnancy [Recovered/Resolved]
